FAERS Safety Report 12340379 (Version 2)
Quarter: 2017Q1

REPORT INFORMATION
  Report Type: Spontaneous
  Country: FR (occurrence: FR)
  Receive Date: 20160506
  Receipt Date: 20170220
  Transmission Date: 20170428
  Serious: Yes (Other)
  Sender: FDA-Public Use
  Company Number: FR-ROCHE-1752397

PATIENT
  Age: 62 Year
  Sex: Male

DRUGS (2)
  1. RIVOTRIL [Suspect]
     Active Substance: CLONAZEPAM
     Indication: ORTHOSTATIC TREMOR
     Dosage: SCORED TABLET
     Route: 048
     Dates: start: 20151202, end: 20151216
  2. VALIUM [Concomitant]
     Active Substance: DIAZEPAM
     Route: 065
     Dates: start: 20160325, end: 201609

REACTIONS (6)
  - Erectile dysfunction [Recovered/Resolved]
  - Abnormal behaviour [Recovered/Resolved]
  - Off label use [Unknown]
  - Suicidal ideation [Recovered/Resolved]
  - Aggression [Recovered/Resolved]
  - Product use issue [Unknown]

NARRATIVE: CASE EVENT DATE: 20151204
